FAERS Safety Report 4502282-4 (Version None)
Quarter: 2004Q4

REPORT INFORMATION
  Report Type: 
  Country: None (occurrence: None)
  Receive Date: 20041116
  Receipt Date: 20041018
  Transmission Date: 20050328
  Serious: Yes (Death)
  Sender: FDA-Public Use
  Company Number: PHHO2004ES14657

PATIENT
  Age: 72 Year
  Sex: Male

DRUGS (7)
  1. NEORAL [Suspect]
     Indication: RENAL TRANSPLANT
     Dosage: 200 MG / DAY
     Route: 048
     Dates: start: 20040203, end: 20040915
  2. PREDNISONE [Concomitant]
     Indication: RENAL TRANSPLANT
  3. OMEPRAZOLE [Concomitant]
  4. ENALAPRIL [Concomitant]
  5. DILTIAZEM [Concomitant]
  6. FENTANYL [Concomitant]
  7. SALBUTAMOL [Concomitant]

REACTIONS (2)
  - CARDIO-RESPIRATORY ARREST [None]
  - LUNG NEOPLASM MALIGNANT [None]
